FAERS Safety Report 7051245-6 (Version None)
Quarter: 2010Q4

REPORT INFORMATION
  Report Type: 
  Country: None (occurrence: None)
  Receive Date: 20101014
  Receipt Date: 20101004
  Transmission Date: 20110411
  Serious: Yes (Hospitalization)
  Sender: FDA-Public Use
  Company Number: 1000016393

PATIENT
  Age: 89 Year
  Sex: Male

DRUGS (14)
  1. LEXAPRO [Suspect]
     Indication: DEPRESSION
     Dosage: 5 MG (5 MG, 1 IN 1 D), ORAL
     Route: 048
     Dates: start: 20080101, end: 20100911
  2. NAMENDA [Concomitant]
  3. ARICEPT [Concomitant]
  4. COZAAR [Concomitant]
  5. CLONIDINE [Concomitant]
  6. METHYLPHENIDATE (METHYLPHENIDATE) (METHYLPHENIDATE) [Concomitant]
  7. METOPROLOL SUCCINATE [Concomitant]
  8. OMEPRAZOLE [Concomitant]
  9. OXYTROL (OXYBUTYNIN TRANSDERMAL) (OXYBUTYNIN TRANSDERMAL) [Concomitant]
  10. SEROQUEL (QUETIAPINE FUMARATE) (QUETIAPINE FUMARATE) [Concomitant]
  11. STALEVO (CARBIDOPA, LEVODOPA, ENTACAPONE) (CARBIDOPA, LEVODOPA, ENTACA [Concomitant]
  12. FLUDROCORTISONE ACETATE (FLUDROCORTISONE ACETATE) (FLUDROCORTISONE ACE [Concomitant]
  13. FINASTERIDE (FINASTERIDE) (FINASTERIDE) [Concomitant]
  14. TPN (LIQUID) [Concomitant]

REACTIONS (5)
  - EYE DISORDER [None]
  - HYPERSOMNIA [None]
  - LETHARGY [None]
  - STAPHYLOCOCCAL INFECTION [None]
  - URINARY TRACT INFECTION [None]
